FAERS Safety Report 5508965-1 (Version None)
Quarter: 2007Q4

REPORT INFORMATION
  Report Type: 
  Country: None (occurrence: None)
  Receive Date: 20071031
  Receipt Date: 20070814
  Transmission Date: 20080405
  Serious: No
  Sender: FDA-Public Use
  Company Number: 2007PV033291

PATIENT
  Age: 63 Year
  Sex: Female

DRUGS (6)
  1. SYMLIN [Suspect]
     Indication: TYPE 2 DIABETES MELLITUS
     Dosage: 30 MCG; QPM; SC, 15 MCG; QPM; SC
     Route: 058
     Dates: start: 20070810, end: 20070813
  2. SYMLIN [Suspect]
     Indication: TYPE 2 DIABETES MELLITUS
     Dosage: 30 MCG; QPM; SC, 15 MCG; QPM; SC
     Route: 058
     Dates: start: 20070814
  3. METFORMIN HCL [Concomitant]
  4. NEXIUM [Concomitant]
  5. HUMALOG [Concomitant]
  6. INSULIN [Concomitant]

REACTIONS (5)
  - ASTHENIA [None]
  - DIARRHOEA [None]
  - DIZZINESS [None]
  - DYSPEPSIA [None]
  - NAUSEA [None]
